FAERS Safety Report 24023675 (Version 1)
Quarter: 2024Q2

REPORT INFORMATION
  Report Type: Spontaneous
  Country: AU (occurrence: AU)
  Receive Date: 20240627
  Receipt Date: 20240627
  Transmission Date: 20240715
  Serious: Yes (Other)
  Sender: FDA-Public Use
  Company Number: None

PATIENT
  Sex: Female

DRUGS (7)
  1. INSULIN ASPART [Suspect]
     Active Substance: INSULIN ASPART
     Dosage: 500 IU
     Route: 064
  2. INSULIN ASPART [Suspect]
     Active Substance: INSULIN ASPART
     Dosage: 1455 IU, QD
     Route: 064
  3. INSULIN ASPART [Suspect]
     Active Substance: INSULIN ASPART
     Dosage: 90 UNITS PER HOUR
     Route: 064
  4. INSULIN ASPART [Suspect]
     Active Substance: INSULIN ASPART
     Indication: Type 2 diabetes mellitus
     Dosage: TWICE DAILY
     Route: 064
  5. INSULIN ASPART [Suspect]
     Active Substance: INSULIN ASPART
     Dosage: 400 UNITS PER DAY BY THE END OF THE FIRST TRIMESTER
     Route: 064
  6. INSULIN HUMAN [Suspect]
     Active Substance: INSULIN HUMAN
     Indication: Type 2 diabetes mellitus
     Dosage: TWICE DAILY
     Route: 064
  7. METFORMIN HYDROCHLORIDE [Suspect]
     Active Substance: METFORMIN HYDROCHLORIDE
     Indication: Type 2 diabetes mellitus
     Dosage: UNK
     Route: 064

REACTIONS (3)
  - Premature baby [Unknown]
  - Hypoglycaemia neonatal [Unknown]
  - Foetal exposure during pregnancy [Recovered/Resolved]
